FAERS Safety Report 11211900 (Version 1)
Quarter: 2015Q2

REPORT INFORMATION
  Report Type: Spontaneous
  Country: IT (occurrence: IT)
  Receive Date: 20150623
  Receipt Date: 20150623
  Transmission Date: 20150821
  Serious: Yes (Hospitalization)
  Sender: FDA-Public Use
  Company Number: IT-MYLANLABS-2015M1020327

PATIENT

DRUGS (15)
  1. SODIUM BICARBONATE. [Concomitant]
     Active Substance: SODIUM BICARBONATE
     Indication: HYPERKALAEMIA
     Dosage: 80MEQ OVER 5 MINS; INFUSION; FOLLOWED BY ADDITIONAL 80MEQ
     Route: 050
  2. ATORVASTATIN [Concomitant]
     Active Substance: ATORVASTATIN
     Dosage: 20MG/D
     Route: 065
  3. BETAHISTINE [Concomitant]
     Active Substance: BETAHISTINE
     Dosage: 8MG/D
     Route: 065
  4. NITROGLYCERIN. [Concomitant]
     Active Substance: NITROGLYCERIN
     Route: 062
  5. GLUCOSE [Concomitant]
     Active Substance: DEXTROSE
     Indication: HYPERKALAEMIA
     Dosage: 25G; INFUSION
     Route: 050
  6. ASPIRIN                            /00002701/ [Suspect]
     Active Substance: ASPIRIN
     Indication: PRODUCT USED FOR UNKNOWN INDICATION
     Dosage: 300MG/D
     Route: 065
  7. PIROXICAM. [Concomitant]
     Active Substance: PIROXICAM
     Dosage: OCCASIONAL
     Route: 065
  8. FUROSEMIDE. [Concomitant]
     Active Substance: FUROSEMIDE
     Indication: HYPERKALAEMIA
     Dosage: 40MG
     Route: 065
  9. SODIUM CHLORIDE. [Concomitant]
     Active Substance: SODIUM CHLORIDE
     Dosage: 1000ML; RAPID INFUSION
     Route: 050
  10. AMILOCLOR [Suspect]
     Active Substance: AMILORIDE HYDROCHLORIDE\HYDROCHLOROTHIAZIDE
     Indication: PRODUCT USED FOR UNKNOWN INDICATION
     Dosage: 50MG/5MG/D
     Route: 065
  11. CALCIUM CHLORIDE. [Concomitant]
     Active Substance: CALCIUM CHLORIDE
     Indication: HYPERKALAEMIA
     Dosage: 10%, 10ML
     Route: 040
  12. ALPRAZOLAM. [Concomitant]
     Active Substance: ALPRAZOLAM
     Dosage: OCCASIONAL
     Route: 065
  13. INSULIN [Concomitant]
     Active Substance: INSULIN NOS
     Indication: HYPERKALAEMIA
     Dosage: 10IU OVER 15MINS
     Route: 065
  14. BENAZEPRIL [Suspect]
     Active Substance: BENAZEPRIL\BENAZEPRIL HYDROCHLORIDE
     Indication: PRODUCT USED FOR UNKNOWN INDICATION
     Dosage: 10MG/D
     Route: 065
  15. LERCANIDIPINE [Suspect]
     Active Substance: LERCANIDIPINE
     Indication: PRODUCT USED FOR UNKNOWN INDICATION
     Dosage: 10MG/D
     Route: 065

REACTIONS (5)
  - Quadriplegia [Recovering/Resolving]
  - Device capturing issue [Unknown]
  - Cardiac disorder [Unknown]
  - Myocardial infarction [None]
  - Hyperkalaemia [Recovered/Resolved]
